FAERS Safety Report 23796548 (Version 1)
Quarter: 2024Q2

REPORT INFORMATION
  Report Type: Spontaneous
  Country: ES (occurrence: ES)
  Receive Date: 20240430
  Receipt Date: 20240430
  Transmission Date: 20240716
  Serious: Yes (Other)
  Sender: FDA-Public Use
  Company Number: None

PATIENT
  Age: 63 Year
  Sex: Female

DRUGS (19)
  1. ACETAMINOPHEN [Suspect]
     Active Substance: ACETAMINOPHEN
     Indication: Product used for unknown indication
     Route: 048
     Dates: start: 20230928, end: 20231010
  2. FLUCONAZOLE [Suspect]
     Active Substance: FLUCONAZOLE
     Indication: Angiocentric lymphoma
     Dosage: FLUCONAZOLE COMBIX 100 MG HARD CAPSULES EFG, 7 CAPSULES
     Route: 048
     Dates: start: 20231101, end: 20231109
  3. FLUCONAZOLE [Suspect]
     Active Substance: FLUCONAZOLE
     Indication: Haemophagocytic lymphohistiocytosis
  4. CISPLATIN [Suspect]
     Active Substance: CISPLATIN
     Indication: Angiocentric lymphoma
     Dosage: CISPLATIN (644A)
     Route: 042
     Dates: start: 20231116, end: 20231122
  5. CISPLATIN [Suspect]
     Active Substance: CISPLATIN
     Indication: Haemophagocytic lymphohistiocytosis
  6. ETOPOSIDE [Suspect]
     Active Substance: ETOPOSIDE
     Indication: Angiocentric lymphoma
     Route: 042
     Dates: start: 20231015, end: 20231017
  7. ETOPOSIDE [Suspect]
     Active Substance: ETOPOSIDE
     Indication: Haemophagocytic lymphohistiocytosis
  8. GEMCITABINE [Suspect]
     Active Substance: GEMCITABINE
     Indication: Angiocentric lymphoma
     Route: 042
     Dates: start: 20231226, end: 20231226
  9. GEMCITABINE [Suspect]
     Active Substance: GEMCITABINE
     Indication: Haemophagocytic lymphohistiocytosis
     Route: 042
     Dates: start: 20231115, end: 20231122
  10. AMOXICILLIN\CLAVULANIC ACID [Suspect]
     Active Substance: AMOXICILLIN\CLAVULANIC ACID
     Indication: Angiocentric lymphoma
     Route: 042
     Dates: start: 20230928, end: 20231009
  11. AMOXICILLIN\CLAVULANIC ACID [Suspect]
     Active Substance: AMOXICILLIN\CLAVULANIC ACID
     Indication: Haemophagocytic lymphohistiocytosis
  12. IFOSFAMIDE [Suspect]
     Active Substance: IFOSFAMIDE
     Indication: Angiocentric lymphoma
     Route: 042
     Dates: start: 20231015, end: 20231017
  13. IFOSFAMIDE [Suspect]
     Active Substance: IFOSFAMIDE
     Indication: Haemophagocytic lymphohistiocytosis
  14. FLUCONAZOLE [Suspect]
     Active Substance: FLUCONAZOLE
     Indication: Angiocentric lymphoma
     Dosage: FLUCONAZOLE 100 MG INJECTION INFUSION 50 ML
     Route: 042
     Dates: start: 20231012, end: 20231014
  15. FLUCONAZOLE [Suspect]
     Active Substance: FLUCONAZOLE
     Indication: Haemophagocytic lymphohistiocytosis
  16. METHOTREXATE [Suspect]
     Active Substance: METHOTREXATE
     Indication: Haemophagocytic lymphohistiocytosis
     Dosage: METHOTREXATE (418A)
     Route: 042
     Dates: start: 20231014, end: 20231014
  17. METHOTREXATE [Suspect]
     Active Substance: METHOTREXATE
     Indication: Angiocentric lymphoma
  18. ERTAPENEM [Suspect]
     Active Substance: ERTAPENEM
     Indication: Haemophagocytic lymphohistiocytosis
     Dosage: ERTAPENEM 1,000 MG INJECTION PERFUSION 1 VIAL
     Route: 042
     Dates: start: 20231010, end: 20231013
  19. ERTAPENEM [Suspect]
     Active Substance: ERTAPENEM
     Indication: Angiocentric lymphoma

REACTIONS (3)
  - Mixed liver injury [Recovered/Resolved]
  - Hyperbilirubinaemia [Recovered/Resolved]
  - Coagulopathy [Recovered/Resolved]

NARRATIVE: CASE EVENT DATE: 20231109
